FAERS Safety Report 6163440-9 (Version None)
Quarter: 2009Q1

REPORT INFORMATION
  Report Type: 
  Country: None (occurrence: None)
  Receive Date: 20090313
  Receipt Date: 20081201
  Transmission Date: 20090719
  Serious: Yes (Hospitalization)
  Sender: FDA-Public Use
  Company Number: AE08-004

PATIENT
  Age: 43 Year
  Sex: Female

DRUGS (2)
  1. MIXTURE OF ALLERGENIC EXTRACTS - OFFICE PREPARED A [Suspect]
     Indication: MULTIPLE ALLERGIES
     Dosage: SUBCUTANEOUS
     Route: 058
     Dates: start: 20081111
  2. MIXTURE OF ALLERGENIC EXTRACTS - OFFICE PREPARED B [Suspect]

REACTIONS (2)
  - ANAPHYLACTIC REACTION [None]
  - MULTIPLE ALLERGIES [None]
